FAERS Safety Report 24271341 (Version 2)
Quarter: 2024Q3

REPORT INFORMATION
  Report Type: Spontaneous
  Country: US (occurrence: US)
  Receive Date: 20240901
  Receipt Date: 20240919
  Transmission Date: 20241017
  Serious: Yes (Other)
  Sender: JOHNSON AND JOHNSON
  Company Number: US-JNJFOC-20240878056

PATIENT
  Age: 27 Year
  Sex: Male
  Weight: 122.58 kg

DRUGS (3)
  1. INVEGA SUSTENNA [Suspect]
     Active Substance: PALIPERIDONE PALMITATE
     Indication: Schizoaffective disorder depressive type
     Route: 030
     Dates: start: 20230315
  2. INVEGA SUSTENNA [Suspect]
     Active Substance: PALIPERIDONE PALMITATE
  3. INVEGA SUSTENNA [Suspect]
     Active Substance: PALIPERIDONE PALMITATE

REACTIONS (4)
  - Hyperprolactinaemia [Recovering/Resolving]
  - Pituitary tumour benign [Unknown]
  - Gynaecomastia [Unknown]
  - Hypogonadism [Unknown]

NARRATIVE: CASE EVENT DATE: 20231010
